FAERS Safety Report 18590958 (Version 1)
Quarter: 2020Q4

REPORT INFORMATION
  Report Type: Report from Study
  Country: US (occurrence: US)
  Receive Date: 20201208
  Receipt Date: 20201208
  Transmission Date: 20210114
  Serious: No
  Sender: FDA-Public Use
  Company Number: NVSC2020US320574

PATIENT
  Age: 65 Year
  Sex: Male
  Weight: 104.31 kg

DRUGS (2)
  1. COSENTYX [Suspect]
     Active Substance: SECUKINUMAB
     Dosage: UNK
     Route: 065
     Dates: start: 20201028
  2. COSENTYX [Suspect]
     Active Substance: SECUKINUMAB
     Indication: PRODUCT USED FOR UNKNOWN INDICATION
     Dosage: 150 MG, QMO (2 MONTHLY)
     Route: 065
     Dates: start: 202006

REACTIONS (3)
  - Product dose omission issue [Unknown]
  - Incorrect product administration duration [Unknown]
  - Psoriasis [Unknown]

NARRATIVE: CASE EVENT DATE: 20201028
